FAERS Safety Report 13272961 (Version 1)
Quarter: 2017Q1

REPORT INFORMATION
  Report Type: Spontaneous
  Country: UY (occurrence: UY)
  Receive Date: 20170227
  Receipt Date: 20170227
  Transmission Date: 20170428
  Serious: Yes (Other)
  Sender: FDA-Public Use
  Company Number: UY-PFIZER INC-2017078596

PATIENT

DRUGS (2)
  1. LETROZOLE. [Concomitant]
     Active Substance: LETROZOLE
  2. PALBOCICLIB [Suspect]
     Active Substance: PALBOCICLIB

REACTIONS (2)
  - Off label use [Unknown]
  - Bone marrow failure [Unknown]
